FAERS Safety Report 18100547 (Version 2)
Quarter: 2020Q3

REPORT INFORMATION
  Report Type: Spontaneous
  Country: US (occurrence: US)
  Receive Date: 20200731
  Receipt Date: 20200804
  Transmission Date: 20201103
  Serious: No
  Sender: FDA-Public Use
  Company Number: US-PFIZER INC-2020291426

PATIENT
  Sex: Male

DRUGS (1)
  1. GABAPENTIN. [Suspect]
     Active Substance: GABAPENTIN
     Indication: TREMOR
     Dosage: 1800 MG (6 PILLS OF 300 MG), THREE TIMES A DAY (TOTAL OF 18 PILLS A DAY)

REACTIONS (6)
  - Pain in extremity [Unknown]
  - Off label use [Unknown]
  - Myalgia [Unknown]
  - Product use in unapproved indication [Unknown]
  - Overdose [Unknown]
  - Muscle discomfort [Unknown]
